FAERS Safety Report 4974939-2 (Version None)
Quarter: 2006Q2

REPORT INFORMATION
  Report Type: 
  Country: None (occurrence: None)
  Receive Date: 20060418
  Receipt Date: 20060405
  Transmission Date: 20061013
  Serious: Yes (Hospitalization)
  Sender: FDA-Public Use
  Company Number: US-RB-3098-2006

PATIENT
  Sex: Female

DRUGS (1)
  1. BUPRENORPHINE, NALOXONE [Suspect]
     Dosage: X 1 WEEK OF SUBOXONE ONLY
     Route: 060

REACTIONS (1)
  - PITTING OEDEMA [None]
